FAERS Safety Report 5803293-9 (Version None)
Quarter: 2008Q3

REPORT INFORMATION
  Report Type: 
  Country: None (occurrence: None)
  Receive Date: 20080701
  Receipt Date: 20080226
  Transmission Date: 20090109
  Serious: No
  Sender: FDA-Public Use
  Company Number: US200711002001

PATIENT
  Age: 51 Year
  Sex: Male

DRUGS (5)
  1. HUMALOG [Suspect]
     Indication: DIABETES MELLITUS
     Dosage: 7 U
     Dates: start: 20071107, end: 20071107
  2. HUMALOG [Suspect]
     Indication: DIABETES MELLITUS
     Dosage: 7 U
     Dates: start: 20070201
  3. HUMULIN N [Suspect]
     Indication: DIABETES MELLITUS
  4. AVAPRO [Concomitant]
  5. INSPRA [Concomitant]

REACTIONS (4)
  - BLOOD GLUCOSE INCREASED [None]
  - HYPOGLYCAEMIA [None]
  - INCORRECT DOSE ADMINISTERED [None]
  - SHOCK HYPOGLYCAEMIC [None]
